FAERS Safety Report 19859423 (Version 1)
Quarter: 2021Q3

REPORT INFORMATION
  Report Type: Spontaneous
  Country: US (occurrence: US)
  Receive Date: 20210921
  Receipt Date: 20210921
  Transmission Date: 20211014
  Serious: Yes (Hospitalization)
  Sender: FDA-Public Use
  Company Number: US-UNICHEM PHARMACEUTICALS (USA) INC-UCM202109-000843

PATIENT
  Age: 6 Year
  Sex: Male
  Weight: 27 kg

DRUGS (2)
  1. CETIRIZINE, HCL [Suspect]
     Active Substance: CETIRIZINE HYDROCHLORIDE
     Indication: RHINITIS ALLERGIC
  2. CETIRIZINE, HCL [Suspect]
     Active Substance: CETIRIZINE HYDROCHLORIDE
     Indication: OVERDOSE
     Dosage: EQUATED TO BETWEEN 15 AND 20 ML (15?20 MG)

REACTIONS (2)
  - Overdose [Unknown]
  - Anticholinergic syndrome [Recovering/Resolving]
